FAERS Safety Report 7479810-2 (Version None)
Quarter: 2011Q2

REPORT INFORMATION
  Report Type: 
  Country: None (occurrence: None)
  Receive Date: 20110513
  Receipt Date: 20110120
  Transmission Date: 20111010
  Serious: Yes (Hospitalization)
  Sender: FDA-Public Use
  Company Number: US-AMGEN-USACT2010001262

PATIENT
  Age: 34 Year
  Weight: 73.34 kg

DRUGS (8)
  1. LOPRESSOR [Concomitant]
     Dosage: 25 MG, TID
     Route: 048
  2. LONITEN [Concomitant]
     Dosage: 10 MG, QD
     Route: 048
  3. CALCIUM ACETATE [Concomitant]
     Dosage: 667 MG, BID
  4. CINACALCET HYDROCHLORIDE [Suspect]
     Indication: HYPERPARATHYROIDISM SECONDARY
     Dosage: UNK UNK, QD
     Route: 048
     Dates: start: 20100317
  5. TUMS ULTRA SPEARMINT [Concomitant]
     Dosage: 2000 MG, TID
     Route: 048
  6. LANTUS [Concomitant]
     Dosage: 12 UNIT, BID
     Route: 058
  7. NORVASC [Concomitant]
     Dosage: 10 MG, QD
     Route: 048
  8. NOVOLOG [Concomitant]
     Route: 058

REACTIONS (2)
  - CONVULSION [None]
  - HYPOGLYCAEMIA [None]
